FAERS Safety Report 9187408 (Version 2)
Quarter: 2012Q4

REPORT INFORMATION
  Report Type: 
  Country: US (occurrence: US)
  Receive Date: 20121119
  Receipt Date: 20121219
  Transmission Date: 20130627
  Serious: Yes (Other)
  Sender: FDA-Public Use
  Company Number: US-RB-046810-12

PATIENT
  Age: 0 None
  Sex: Female

DRUGS (6)
  1. SUBUTEX [Suspect]
     Indication: DRUG DEPENDENCE
     Route: 064
     Dates: start: 20120423, end: 20121009
  2. ALBUTEROL [Suspect]
     Indication: ASTHMA
     Dosage: Dosing details unknown
     Route: 064
     Dates: start: 20120430, end: 20121009
  3. PRENATAL VITAMIN [Suspect]
     Indication: PREGNANCY
     Dosage: Dosing details unknown
     Route: 064
     Dates: start: 2012, end: 20121009
  4. GENERIC BUPRENORPHINE [Suspect]
     Indication: PRODUCT USED FOR UNKNOWN INDICATION
     Dosage: Dosing details unknown
     Route: 063
  5. NICOTINE [Suspect]
     Indication: PRODUCT USED FOR UNKNOWN INDICATION
     Dosage: 10 cigarettes per day
     Route: 064
     Dates: start: 2012, end: 20121009
  6. NARCOTICS [Suspect]
     Indication: PRODUCT USED FOR UNKNOWN INDICATION
     Dosage: Dosing details unknown
     Route: 064
     Dates: start: 2012, end: 20120423

REACTIONS (6)
  - Low birth weight baby [Recovered/Resolved]
  - Foetal exposure during pregnancy [Recovered/Resolved]
  - Exposure during breast feeding [Not Recovered/Not Resolved]
  - Caesarean section [None]
  - Umbilical cord around neck [None]
  - Maternal drugs affecting foetus [None]
